FAERS Safety Report 18537983 (Version 1)
Quarter: 2020Q4

REPORT INFORMATION
  Report Type: Spontaneous
  Country: IT (occurrence: IT)
  Receive Date: 20201123
  Receipt Date: 20201123
  Transmission Date: 20210114
  Serious: Yes (Other)
  Sender: FDA-Public Use
  Company Number: IT-009507513-2011ITA011710

PATIENT
  Age: 78 Year
  Sex: Male
  Weight: 80 kg

DRUGS (9)
  1. ENTRESTO [Concomitant]
     Active Substance: SACUBITRIL\VALSARTAN
     Route: 048
  2. BISOPROLOL [Concomitant]
     Active Substance: BISOPROLOL
     Dosage: 2.5 MILLIGRAM
     Route: 048
  3. ELIQUIS [Interacting]
     Active Substance: APIXABAN
     Indication: ATRIAL FIBRILLATION
     Dosage: 5 MILLIGRAM, QD
     Route: 048
  4. CANRENONE [Concomitant]
     Active Substance: CANRENONE
     Dosage: 50 MILLIGRAM
     Route: 048
  5. DAPTOMYCIN. [Suspect]
     Active Substance: DAPTOMYCIN
     Indication: STAPHYLOCOCCAL INFECTION
     Dosage: 500 MILLIGRAM, QD
     Route: 042
     Dates: start: 20201026, end: 20201104
  6. SIMVASTATIN. [Concomitant]
     Active Substance: SIMVASTATIN
     Dosage: 20 MILLIGRAM
  7. FUROSEMIDE. [Concomitant]
     Active Substance: FUROSEMIDE
     Dosage: 100 MILLIGRAM
     Route: 048
  8. ALLOPURINOL. [Concomitant]
     Active Substance: ALLOPURINOL
     Dosage: 150 MILLIGRAM
  9. PANTOPRAZOLE [Concomitant]
     Active Substance: PANTOPRAZOLE
     Dosage: 40 MILLIGRAM

REACTIONS (4)
  - Anaemia [Recovered/Resolved]
  - Drug interaction [Recovered/Resolved]
  - Epistaxis [Recovered/Resolved]
  - Anticoagulation drug level above therapeutic [Recovered/Resolved]

NARRATIVE: CASE EVENT DATE: 20201103
